FAERS Safety Report 12390649 (Version 2)
Quarter: 2016Q2

REPORT INFORMATION
  Report Type: Report from Study
  Country: US (occurrence: US)
  Receive Date: 20160520
  Receipt Date: 20160607
  Transmission Date: 20160815
  Serious: Yes (Other)
  Sender: FDA-Public Use
  Company Number: US-ABBVIE-16P-163-1605916-00

PATIENT
  Age: 55 Year
  Sex: Male
  Weight: 113.5 kg

DRUGS (11)
  1. ULTRAM [Concomitant]
     Active Substance: TRAMADOL HYDROCHLORIDE
     Indication: PRODUCT USED FOR UNKNOWN INDICATION
  2. MODERIBA [Suspect]
     Active Substance: RIBAVIRIN
     Dosage: IN THE AM AND IN THE PM
     Route: 048
     Dates: start: 20160414
  3. NEURONTIN [Concomitant]
     Active Substance: GABAPENTIN
     Indication: PAIN
  4. VIEKIRA PAK [Suspect]
     Active Substance: DASABUVIR\OMBITASVIR\PARITAPREVIR\RITONAVIR
     Indication: CHRONIC HEPATITIS C
     Route: 048
     Dates: start: 20160407, end: 20160505
  5. ATENOLOL. [Concomitant]
     Active Substance: ATENOLOL
     Indication: HYPERTENSION
  6. ASPIRIN. [Concomitant]
     Active Substance: ASPIRIN
     Indication: PRODUCT USED FOR UNKNOWN INDICATION
  7. TRIMAL [Concomitant]
     Indication: PRODUCT USED FOR UNKNOWN INDICATION
  8. TONAL [Concomitant]
     Indication: PRODUCT USED FOR UNKNOWN INDICATION
  9. FLEXERIL [Concomitant]
     Active Substance: CYCLOBENZAPRINE HYDROCHLORIDE
     Indication: PAIN
  10. TRAMADOL. [Concomitant]
     Active Substance: TRAMADOL
     Indication: PAIN
  11. MODERIBA [Suspect]
     Active Substance: RIBAVIRIN
     Indication: CHRONIC HEPATITIS C
     Dosage: 600MG IN THE AM?800MG IN THE PM
     Route: 048
     Dates: start: 20160407, end: 20160414

REACTIONS (26)
  - Liver injury [Unknown]
  - Abdominal distension [Recovered/Resolved]
  - Anxiety [Recovered/Resolved]
  - Bowel movement irregularity [Unknown]
  - Insomnia [Unknown]
  - Headache [Recovered/Resolved]
  - Mobility decreased [Not Recovered/Not Resolved]
  - Paraesthesia [Unknown]
  - Malaise [Unknown]
  - Fatigue [Not Recovered/Not Resolved]
  - Contusion [Unknown]
  - Gastric haemorrhage [Unknown]
  - Depression [Not Recovered/Not Resolved]
  - Abasia [Unknown]
  - Gait disturbance [Unknown]
  - Palpitations [Unknown]
  - Pain [Recovered/Resolved]
  - Faeces discoloured [Unknown]
  - Sunburn [Unknown]
  - Pain [Not Recovered/Not Resolved]
  - Burning sensation [Not Recovered/Not Resolved]
  - Gait disturbance [Not Recovered/Not Resolved]
  - Peripheral swelling [Unknown]
  - Drug intolerance [Unknown]
  - Suicidal ideation [Unknown]
  - Swelling face [Unknown]

NARRATIVE: CASE EVENT DATE: 20160410
